FAERS Safety Report 5753376-7 (Version None)
Quarter: 2008Q2

REPORT INFORMATION
  Report Type: 
  Country: None (occurrence: None)
  Receive Date: 20080527
  Receipt Date: 20080509
  Transmission Date: 20081010
  Serious: Yes (Death)
  Sender: FDA-Public Use
  Company Number: MC200800179

PATIENT
  Age: 60 Year
  Sex: Male

DRUGS (3)
  1. ANGIOMAX [Suspect]
     Indication: ANTICOAGULANT THERAPY
  2. ASPIRIN [Concomitant]
  3. ANTI-DIABETICS [Concomitant]

REACTIONS (2)
  - STENT OCCLUSION [None]
  - SUDDEN DEATH [None]
